FAERS Safety Report 10165902 (Version 2)
Quarter: 2014Q2

REPORT INFORMATION
  Report Type: Spontaneous
  Country: US (occurrence: US)
  Receive Date: 20140510
  Receipt Date: 20140510
  Transmission Date: 20141212
  Serious: No
  Sender: FDA-Public Use
  Company Number: US-BRISTOL-MYERS SQUIBB COMPANY-18574046

PATIENT
  Age: 65 Year
  Sex: Male
  Weight: 104.31 kg

DRUGS (4)
  1. BYDUREON 2MG VIAL + SYRINGE [Suspect]
     Indication: TYPE 2 DIABETES MELLITUS
     Dosage: EXP: APR16
     Route: 058
  2. GLIMEPIRIDE [Concomitant]
     Indication: TYPE 2 DIABETES MELLITUS
     Route: 048
  3. FLOMAX [Concomitant]
  4. GABAPENTIN [Concomitant]

REACTIONS (8)
  - Injection site nodule [Not Recovered/Not Resolved]
  - Injection site haemorrhage [Recovering/Resolving]
  - Injection site pain [Recovering/Resolving]
  - Injection site induration [Not Recovered/Not Resolved]
  - Injection site swelling [Unknown]
  - Hypersensitivity [Unknown]
  - Drug dose omission [Unknown]
  - Product quality issue [Unknown]
